FAERS Safety Report 10082509 (Version 2)
Quarter: 2014Q3

REPORT INFORMATION
  Report Type: Report from Study
  Country: US (occurrence: US)
  Receive Date: 20140416
  Receipt Date: 20140904
  Transmission Date: 20150326
  Serious: Yes (Death, Hospitalization)
  Sender: FDA-Public Use
  Company Number: US-BIOGENIDEC-2014BI034238

PATIENT
  Age: 32 Year
  Sex: Male
  Weight: 73 kg

DRUGS (27)
  1. METHADONE [Concomitant]
     Active Substance: METHADONE HYDROCHLORIDE
     Route: 048
  2. TECFIDERA [Suspect]
     Active Substance: DIMETHYL FUMARATE
     Indication: PRODUCT USED FOR UNKNOWN INDICATION
     Route: 048
     Dates: start: 201310, end: 20131113
  3. BLISTIK LIP BALM [Concomitant]
     Route: 061
  4. LEVETIRACETAM. [Concomitant]
     Active Substance: LEVETIRACETAM
     Route: 048
  5. BISACODYL. [Concomitant]
     Active Substance: BISACODYL
     Route: 054
  6. TIZANIDINE [Concomitant]
     Active Substance: TIZANIDINE
     Route: 048
  7. ATROPINE [Concomitant]
     Active Substance: ATROPINE
     Route: 060
  8. DOCUSATE [Concomitant]
     Active Substance: DOCUSATE
     Route: 054
  9. RISPERIDONE. [Concomitant]
     Active Substance: RISPERIDONE
     Route: 048
  10. CLONAZEPAM. [Concomitant]
     Active Substance: CLONAZEPAM
  11. DULOXETINE [Concomitant]
     Active Substance: DULOXETINE
     Route: 048
  12. HYDROCODONE [Concomitant]
     Active Substance: HYDROCODONE
  13. OXYBUTYNIN [Concomitant]
     Active Substance: OXYBUTYNIN
     Route: 048
  14. IPRATROPIUM [Concomitant]
     Active Substance: IPRATROPIUM
     Route: 055
  15. AMANTADINE [Concomitant]
     Active Substance: AMANTADINE
     Route: 048
  16. ARTIFICIAL TEAR SOLUTION [Concomitant]
     Route: 047
  17. SCOPOLAMINE [Concomitant]
     Active Substance: SCOPOLAMINE
     Route: 061
  18. GLYCOPYRROLATE. [Concomitant]
     Active Substance: GLYCOPYRROLATE
     Route: 048
  19. PRAMIPEXOLE [Concomitant]
     Active Substance: PRAMIPEXOLE
     Route: 048
  20. LORAZEPAM. [Concomitant]
     Active Substance: LORAZEPAM
     Route: 048
  21. ACETAMINOPHEN. [Concomitant]
     Active Substance: ACETAMINOPHEN
     Route: 054
  22. PROCHLORPERAZINE. [Concomitant]
     Active Substance: PROCHLORPERAZINE
     Route: 054
  23. MORPHINE [Concomitant]
     Active Substance: MORPHINE
     Route: 055
  24. ENOXAPARIN [Concomitant]
     Active Substance: ENOXAPARIN
     Indication: THROMBOSIS PROPHYLAXIS
  25. MELOXICAM. [Concomitant]
     Active Substance: MELOXICAM
     Route: 048
  26. ALBUTEROL. [Concomitant]
     Active Substance: ALBUTEROL
     Route: 055
  27. BACLOFEN. [Concomitant]
     Active Substance: BACLOFEN
     Route: 048

REACTIONS (6)
  - Urinary tract infection [Unknown]
  - Death [Fatal]
  - Neuralgia [Unknown]
  - Progressive multiple sclerosis [Unknown]
  - Hypernatraemia [Unknown]
  - Transaminases increased [Unknown]

NARRATIVE: CASE EVENT DATE: 20131114
